FAERS Safety Report 13732583 (Version 1)
Quarter: 2017Q3

REPORT INFORMATION
  Report Type: Report from Study
  Country: US (occurrence: US)
  Receive Date: 20170707
  Receipt Date: 20170707
  Transmission Date: 20171127
  Serious: Yes (Hospitalization, Other)
  Sender: FDA-Public Use
  Company Number: US-SAOL THERAPEUTICS-2017SAO01148

PATIENT
  Age: 58 Year
  Sex: Female

DRUGS (4)
  1. COMPOUNDED BACLOFEN [Suspect]
     Active Substance: BACLOFEN
     Dosage: 70.52 ?G, \DAY
     Route: 037
     Dates: start: 20140814
  2. MORPHINE [Suspect]
     Active Substance: MORPHINE
     Dosage: 4.228 MG, \DAY
     Route: 037
     Dates: start: 20140814
  3. COMPOUNDED BACLOFEN [Suspect]
     Active Substance: BACLOFEN
     Indication: PAIN
     Dosage: 67.64 ?G, \DAY
     Route: 037
     Dates: start: 20140814
  4. MORPHINE [Suspect]
     Active Substance: MORPHINE
     Dosage: 4.408 MG, \DAY
     Route: 037
     Dates: start: 20140814

REACTIONS (4)
  - Seroma [Recovered/Resolved]
  - Pseudomonas infection [Recovered/Resolved]
  - Implant site infection [Recovered/Resolved]
  - Off label use [Unknown]

NARRATIVE: CASE EVENT DATE: 20150518
